FAERS Safety Report 25179779 (Version 1)
Quarter: 2025Q2

REPORT INFORMATION
  Report Type: Report from Study
  Country: US (occurrence: US)
  Receive Date: 20250409
  Receipt Date: 20250409
  Transmission Date: 20250717
  Serious: Yes (Hospitalization)
  Sender: BAYER
  Company Number: US-BAYER-2025A030484

PATIENT
  Age: 80 Year
  Sex: Male

DRUGS (1)
  1. NUBEQA [Suspect]
     Active Substance: DAROLUTAMIDE
     Indication: Prostate cancer
     Dosage: 600 MG, BID

REACTIONS (4)
  - Escherichia infection [Unknown]
  - Urinary tract infection [Recovered/Resolved]
  - Vascular operation [None]
  - Prostatic specific antigen increased [None]

NARRATIVE: CASE EVENT DATE: 20250201
